FAERS Safety Report 6964847-X (Version None)
Quarter: 2010Q3

REPORT INFORMATION
  Report Type: 
  Country: None (occurrence: None)
  Receive Date: 20100903
  Receipt Date: 20100830
  Transmission Date: 20110219
  Serious: Yes (Other)
  Sender: FDA-Public Use
  Company Number: FR-JNJFOC-20100900528

PATIENT
  Age: 52 Year
  Sex: Female
  Weight: 73 kg

DRUGS (3)
  1. REMICADE [Suspect]
     Indication: CROHN'S DISEASE
     Dosage: 2ND INFUSION
     Route: 042
  2. REMICADE [Suspect]
     Route: 042
  3. HYDROCORTISONE [Concomitant]

REACTIONS (4)
  - ANAPHYLACTIC SHOCK [None]
  - GENERALISED ERYTHEMA [None]
  - INFUSION RELATED REACTION [None]
  - LARYNGOSPASM [None]
